FAERS Safety Report 6317605-3 (Version None)
Quarter: 2009Q3

REPORT INFORMATION
  Report Type: 
  Country: None (occurrence: None)
  Receive Date: 20090821
  Receipt Date: 20090817
  Transmission Date: 20100115
  Serious: Yes (Hospitalization)
  Sender: FDA-Public Use
  Company Number: FR-BRISTOL-MYERS SQUIBB COMPANY-14744643

PATIENT
  Age: 90 Year
  Sex: Female

DRUGS (4)
  1. COUMADIN [Suspect]
     Dosage: TWO TABLET
     Route: 048
     Dates: start: 20090515, end: 20090619
  2. APROVEL [Suspect]
     Dosage: WITHDRAWAL OF APROVEL 300 MG
     Route: 048
     Dates: end: 20090529
  3. IMOVANE [Suspect]
     Dosage: TABS
     Route: 048
  4. HEPARIN [Concomitant]

REACTIONS (6)
  - DEEP VEIN THROMBOSIS [None]
  - DEHYDRATION [None]
  - DIARRHOEA [None]
  - GASTROENTERITIS [None]
  - ORAL FUNGAL INFECTION [None]
  - RENAL FAILURE [None]
